FAERS Safety Report 5126334-3 (Version None)
Quarter: 2006Q4

REPORT INFORMATION
  Report Type: 
  Country: None (occurrence: None)
  Receive Date: 20061010
  Receipt Date: 20060926
  Transmission Date: 20070319
  Serious: Yes (Hospitalization)
  Sender: FDA-Public Use
  Company Number: 2006BI010959

PATIENT
  Age: 33 Year
  Sex: Female

DRUGS (2)
  1. AVONEX [Suspect]
     Indication: MULTIPLE SCLEROSIS
     Dosage: 30 UG; QW; IM
     Route: 030
     Dates: start: 20040401
  2. AVONEX [Suspect]

REACTIONS (11)
  - ARTHRALGIA [None]
  - BRADYKINESIA [None]
  - FALL [None]
  - FATIGUE [None]
  - HYPOAESTHESIA [None]
  - INCOHERENT [None]
  - INSOMNIA [None]
  - OSTEONECROSIS [None]
  - PARAESTHESIA [None]
  - SOMNOLENCE [None]
  - VISUAL DISTURBANCE [None]
